FAERS Safety Report 12572020 (Version 9)
Quarter: 2018Q1

REPORT INFORMATION
  Report Type: Report from Study
  Country: GB (occurrence: GB)
  Receive Date: 20160719
  Receipt Date: 20180308
  Transmission Date: 20180508
  Serious: Yes (Hospitalization)
  Sender: FDA-Public Use
  Company Number: PHHO2016GB010108

PATIENT
  Age: 68 Year
  Sex: Female
  Weight: 77.7 kg

DRUGS (5)
  1. SYMBICORT [Concomitant]
     Active Substance: BUDESONIDE\FORMOTEROL FUMARATE DIHYDRATE
     Indication: CHRONIC OBSTRUCTIVE PULMONARY DISEASE
     Dosage: 1 DF (DF: 400/12: BUDESONIDE, FORMOTEROL FUMARATE), QD
     Route: 065
     Dates: start: 2011
  2. CICLOSPORIN [Concomitant]
     Active Substance: CYCLOSPORINE
     Indication: PSORIASIS
     Route: 065
  3. AIN457 [Suspect]
     Active Substance: SECUKINUMAB
     Indication: PSORIASIS
     Dosage: 300 MG, UNK
     Route: 058
     Dates: start: 20160524, end: 20160621
  4. MUCODYNE [Concomitant]
     Active Substance: CARBOCYSTEINE
     Indication: CHRONIC OBSTRUCTIVE PULMONARY DISEASE
     Dosage: 375 MG, QD
     Route: 065
     Dates: start: 201508
  5. BRICANYL [Concomitant]
     Active Substance: TERBUTALINE SULFATE
     Indication: CHRONIC OBSTRUCTIVE PULMONARY DISEASE
     Dosage: 00100.00 UG, PRN
     Route: 065
     Dates: start: 2011

REACTIONS (2)
  - Infective exacerbation of chronic obstructive airways disease [Recovered/Resolved]
  - Infective exacerbation of chronic obstructive airways disease [Recovered/Resolved]

NARRATIVE: CASE EVENT DATE: 20160707
